FAERS Safety Report 6998454-X (Version None)
Quarter: 2010Q3

REPORT INFORMATION
  Report Type: 
  Country: None (occurrence: None)
  Receive Date: 20100920
  Receipt Date: 20100908
  Transmission Date: 20110219
  Serious: Yes (Other)
  Sender: FDA-Public Use
  Company Number: US-JNJFOC-20100902921

PATIENT
  Sex: Female
  Weight: 56.25 kg

DRUGS (3)
  1. REMICADE [Suspect]
     Indication: RHEUMATOID ARTHRITIS
     Route: 042
  2. CELEBREX [Concomitant]
  3. IBUPROFEN [Concomitant]

REACTIONS (6)
  - ARTHRALGIA [None]
  - COLON NEOPLASM [None]
  - DRUG EFFECT DECREASED [None]
  - GAIT DISTURBANCE [None]
  - SINUSITIS [None]
  - SPLENIC RUPTURE [None]
